FAERS Safety Report 17565058 (Version 2)
Quarter: 2020Q2

REPORT INFORMATION
  Report Type: Spontaneous
  Country: US (occurrence: US)
  Receive Date: 20200320
  Receipt Date: 20200408
  Transmission Date: 20200713
  Serious: No
  Sender: FDA-Public Use
  Company Number: US-GLAXOSMITHKLINE-US2020AMR045935

PATIENT
  Sex: Male

DRUGS (1)
  1. ZEJULA [Suspect]
     Active Substance: NIRAPARIB
     Indication: PRODUCT USED FOR UNKNOWN INDICATION
     Dosage: 3 DF, QD (100 MG)
     Route: 048
     Dates: start: 20200225, end: 20200403

REACTIONS (5)
  - Vomiting [Unknown]
  - Anxiety [Unknown]
  - Product dose omission [Unknown]
  - Diarrhoea [Unknown]
  - Nausea [Unknown]
